FAERS Safety Report 18153546 (Version 1)
Quarter: 2020Q3

REPORT INFORMATION
  Report Type: Spontaneous
  Country: US (occurrence: US)
  Receive Date: 20200816
  Receipt Date: 20200816
  Transmission Date: 20201103
  Serious: No
  Sender: FDA-Public Use
  Company Number: US-ASTRAZENECA-2020SF01393

PATIENT
  Sex: Male

DRUGS (1)
  1. BUDESONIDE AND FORMOTEROL AEROSOL [Suspect]
     Active Substance: BUDESONIDE\FORMOTEROL FUMARATE DIHYDRATE
     Indication: ASTHMA
     Dosage: 160/4.5 MCG, TWICE A DAY
     Route: 055

REACTIONS (4)
  - Lymph node pain [Unknown]
  - Facial pain [Unknown]
  - Neck pain [Unknown]
  - Oral fungal infection [Recovered/Resolved]
